FAERS Safety Report 13611190 (Version 1)
Quarter: 2017Q2

REPORT INFORMATION
  Report Type: Spontaneous
  Country: US (occurrence: US)
  Receive Date: 20170605
  Receipt Date: 20170605
  Transmission Date: 20170830
  Serious: No
  Sender: FDA-Public Use
  Company Number: US-BIOGEN-2017BI00410074

PATIENT
  Sex: Female

DRUGS (3)
  1. TYSABRI [Suspect]
     Active Substance: NATALIZUMAB
     Dates: start: 20140602, end: 20150921
  2. TYSABRI [Suspect]
     Active Substance: NATALIZUMAB
     Dates: start: 20160913
  3. TYSABRI [Suspect]
     Active Substance: NATALIZUMAB
     Indication: MULTIPLE SCLEROSIS
     Route: 042
     Dates: start: 20100505, end: 20111215

REACTIONS (3)
  - Patient dissatisfaction with treatment [Unknown]
  - Nervous system disorder [Unknown]
  - Impaired self-care [Unknown]
